FAERS Safety Report 9525713 (Version 1)
Quarter: 2013Q3

REPORT INFORMATION
  Report Type: Spontaneous
  Country: FR (occurrence: FR)
  Receive Date: 20130916
  Receipt Date: 20130916
  Transmission Date: 20140515
  Serious: Yes (Hospitalization)
  Sender: FDA-Public Use
  Company Number: FR-SANOFI-AVENTIS-2013SA089064

PATIENT
  Age: 54 Year
  Sex: Female

DRUGS (12)
  1. DOCETAXEL [Suspect]
     Indication: BREAST CANCER
     Route: 065
  2. PERTUZUMAB [Concomitant]
     Indication: BREAST CANCER
     Route: 042
  3. PERTUZUMAB [Concomitant]
     Indication: BREAST CANCER
     Route: 042
  4. TRASTUZUMAB [Concomitant]
     Indication: BREAST CANCER
     Route: 042
  5. TRASTUZUMAB [Concomitant]
     Indication: BREAST CANCER
     Route: 042
  6. HEXOMEDINE [Concomitant]
     Dosage: ROUTE: TRANSCUTANEOUS
     Dates: start: 20120918, end: 20130102
  7. DEXAMETHASONE [Concomitant]
     Dates: start: 20120918
  8. ZECLAR [Concomitant]
     Dosage: DOSE:500 UNIT(S)
     Dates: start: 20130123, end: 20130128
  9. INIPOMP [Concomitant]
     Indication: CHEMOTHERAPY
     Dates: start: 20120802
  10. XYZAL [Concomitant]
     Indication: HYPERSENSITIVITY
     Dates: start: 20120802
  11. EFFERALGAN CODEINE [Concomitant]
     Dates: start: 20120813
  12. FASLODEX [Concomitant]
     Indication: HORMONE THERAPY
     Dates: start: 20130528

REACTIONS (1)
  - Colitis [Unknown]
